FAERS Safety Report 8001123 (Version 5)
Quarter: 2014Q2

REPORT INFORMATION
  Report Type: Spontaneous
  Country: US (occurrence: US)
  Receive Date: 20110621
  Receipt Date: 20140618
  Transmission Date: 20141212
  Serious: No
  Sender: FDA-Public Use
  Company Number: US-ASTRAZENECA-2011SE12261

PATIENT
  Age: 53 Year
  Sex: Female
  Weight: 49.9 kg

DRUGS (9)
  1. RHINOCORT AQUA [Suspect]
     Indication: MULTIPLE ALLERGIES
     Dosage: 2 SPRAYS DAILY
     Route: 045
  2. RHINOCORT AQUA [Suspect]
     Indication: MULTIPLE ALLERGIES
     Dosage: 32 MCG
     Route: 045
  3. RHINOCORT AQUA [Suspect]
     Indication: MULTIPLE ALLERGIES
     Dosage: 1 PUFF EACH NOSTRIL EVERY DAY
     Route: 045
  4. ATROVAN NASAL SPRAY [Concomitant]
  5. SINGULAIR [Concomitant]
  6. ZIRTEC [Concomitant]
  7. FLONASE [Concomitant]
  8. NASOCORT [Concomitant]
  9. NASONEX [Concomitant]

REACTIONS (11)
  - Malaise [Unknown]
  - Dizziness [Not Recovered/Not Resolved]
  - Chest discomfort [Not Recovered/Not Resolved]
  - Dizziness [Not Recovered/Not Resolved]
  - Ear discomfort [Not Recovered/Not Resolved]
  - Chest discomfort [Unknown]
  - Nasal congestion [Unknown]
  - Multiple allergies [Unknown]
  - Diabetes mellitus [Unknown]
  - Rhinitis [Unknown]
  - Drug dose omission [Not Recovered/Not Resolved]
